FAERS Safety Report 6705140-X (Version None)
Quarter: 2010Q2

REPORT INFORMATION
  Report Type: 
  Country: None (occurrence: None)
  Receive Date: 20100430
  Receipt Date: 20100202
  Transmission Date: 20101027
  Serious: No
  Sender: FDA-Public Use
  Company Number: US-ASTRAZENECA-2010SE05272

PATIENT
  Age: 68 Year
  Sex: Male

DRUGS (7)
  1. NEXIUM [Suspect]
     Indication: CROHN'S DISEASE
     Route: 048
  2. ADVAIR DISKUS 100/50 [Concomitant]
  3. PENTASSA [Concomitant]
  4. DIOVAN [Concomitant]
  5. PREDNISONE [Concomitant]
  6. IMODIUM [Concomitant]
  7. VITAMINS [Concomitant]

REACTIONS (5)
  - ABDOMINAL PAIN UPPER [None]
  - DIARRHOEA [None]
  - DRUG DOSE OMISSION [None]
  - GASTRIC PH DECREASED [None]
  - GASTROOESOPHAGEAL REFLUX DISEASE [None]
